FAERS Safety Report 13092772 (Version 1)
Quarter: 2017Q1

REPORT INFORMATION
  Report Type: Spontaneous
  Country: US (occurrence: US)
  Receive Date: 20170105
  Receipt Date: 20170105
  Transmission Date: 20170428
  Serious: Yes (Other)
  Sender: FDA-Public Use
  Company Number: None

PATIENT
  Age: 80 Year
  Sex: Male
  Weight: 72.9 kg

DRUGS (15)
  1. FURESIMIDE [Concomitant]
  2. NATTOKINASE [Concomitant]
     Active Substance: NATTOKINASE
  3. ZINC. [Concomitant]
     Active Substance: ZINC
  4. VITAMIN C [Concomitant]
     Active Substance: ASCORBIC ACID
  5. POTASSIUM [Concomitant]
     Active Substance: POTASSIUM
  6. PROBIOTIC [Concomitant]
     Active Substance: PROBIOTICS NOS
  7. MAGNESIUM [Concomitant]
     Active Substance: MAGNESIUM
  8. DIGOXIN. [Concomitant]
     Active Substance: DIGOXIN
  9. COQ10 [Concomitant]
     Active Substance: UBIDECARENONE
  10. RESVERATROL [Concomitant]
     Active Substance: RESVERATROL
  11. COREG [Concomitant]
     Active Substance: CARVEDILOL
  12. PYGEUM [Concomitant]
     Active Substance: PYGEUM
  13. TAURINE [Concomitant]
     Active Substance: TAURINE
  14. ALBUTEROL. [Suspect]
     Active Substance: ALBUTEROL
     Indication: PULMONARY FUNCTION TEST
     Route: 055
  15. MULTIPLE [Concomitant]

REACTIONS (3)
  - Heart rate increased [None]
  - Dyspnoea [None]
  - Feeling abnormal [None]

NARRATIVE: CASE EVENT DATE: 20170104
